FAERS Safety Report 8850990 (Version 1)
Quarter: 2012Q4

REPORT INFORMATION
  Report Type: 
  Country: JP (occurrence: JP)
  Receive Date: 20121019
  Receipt Date: 20121019
  Transmission Date: 20130627
  Serious: Yes (Other)
  Sender: FDA-Public Use
  Company Number: JP-EISAI INC-E2090-02355-SPO-JP

PATIENT
  Age: 32 Year
  Sex: Male

DRUGS (2)
  1. EXCEGRAN [Suspect]
     Indication: DRUG USE FOR UNKNOWN INDICATION
     Dosage: unknown
     Route: 048
  2. GASMOTIN [Concomitant]

REACTIONS (1)
  - Agranulocytosis [Unknown]
